FAERS Safety Report 4583410-1 (Version None)
Quarter: 2005Q1

REPORT INFORMATION
  Report Type: 
  Country: None (occurrence: None)
  Receive Date: 20050211
  Receipt Date: 20050204
  Transmission Date: 20050727
  Serious: Yes (Death, Life-Threatening)
  Sender: FDA-Public Use
  Company Number: 2004AP05071

PATIENT
  Age: 0 Day
  Sex: Male
  Weight: 2.154 kg

DRUGS (1)
  1. TENORMIN [Suspect]
     Dosage: 0.59 IN BABY'S BLOOD LEVEL

REACTIONS (8)
  - BRADYCARDIA NEONATAL [None]
  - DRUG EXPOSURE DURING PREGNANCY [None]
  - FOETAL GROWTH RETARDATION [None]
  - HYPOTHERMIA NEONATAL [None]
  - ISCHAEMIC STROKE [None]
  - NEONATAL ANOXIA [None]
  - NEONATAL DISORDER [None]
  - NERVOUS SYSTEM DISORDER [None]
